FAERS Safety Report 6494463-8 (Version None)
Quarter: 2009Q4

REPORT INFORMATION
  Report Type: 
  Country: None (occurrence: None)
  Receive Date: 20091214
  Receipt Date: 20090310
  Transmission Date: 20100525
  Serious: No
  Sender: FDA-Public Use
  Company Number: US-BRISTOL-MYERS SQUIBB COMPANY-14514616

PATIENT
  Age: 7 Year
  Sex: Male

DRUGS (1)
  1. ABILIFY [Suspect]
     Dosage: TAKING FOR MANY YEARS;DECREASED TO 1MG BID.
     Dates: start: 20080101

REACTIONS (1)
  - PRIAPISM [None]
